FAERS Safety Report 8468157-3 (Version None)
Quarter: 2012Q2

REPORT INFORMATION
  Report Type: 
  Country: None (occurrence: None)
  Receive Date: 20120626
  Receipt Date: 20120618
  Transmission Date: 20120825
  Serious: Yes (Other)
  Sender: FDA-Public Use
  Company Number: US-MERCK-1201USA00228

PATIENT
  Age: 64 Year
  Sex: Female

DRUGS (6)
  1. FOSAMAX [Suspect]
     Route: 048
     Dates: start: 19980101, end: 20080301
  2. FOSAMAX [Suspect]
     Indication: OSTEOPOROSIS
     Route: 048
     Dates: start: 19980101, end: 20080301
  3. ALENDRONATE SODIUM [Suspect]
     Route: 048
     Dates: start: 20080301, end: 20100301
  4. CALCIUM (UNSPECIFIED) [Concomitant]
     Route: 065
  5. ALENDRONATE SODIUM [Suspect]
     Indication: OSTEOPOROSIS
     Route: 048
     Dates: start: 20080301, end: 20100301
  6. VITAMIN D (UNSPECIFIED) [Concomitant]
     Route: 065

REACTIONS (12)
  - ARTHROPATHY [None]
  - BLOOD CHOLESTEROL INCREASED [None]
  - DIVERTICULITIS [None]
  - OCULAR HYPERAEMIA [None]
  - NASOPHARYNGITIS [None]
  - FEMUR FRACTURE [None]
  - FEMORAL NECK FRACTURE [None]
  - OSTEONECROSIS OF JAW [None]
  - ADVERSE EVENT [None]
  - URINARY TRACT INFECTION [None]
  - ARTHRITIS [None]
  - EYE PRURITUS [None]
